FAERS Safety Report 17610821 (Version 1)
Quarter: 2020Q2

REPORT INFORMATION
  Report Type: Spontaneous
  Country: US (occurrence: US)
  Receive Date: 20200401
  Receipt Date: 20200401
  Transmission Date: 20200713
  Serious: Yes (Hospitalization)
  Sender: FDA-Public Use
  Company Number: None

PATIENT
  Age: 81 Year
  Sex: Female

DRUGS (18)
  1. GABAPENTIN. [Concomitant]
     Active Substance: GABAPENTIN
  2. SOTALOL. [Concomitant]
     Active Substance: SOTALOL
  3. ADVIL [Concomitant]
     Active Substance: IBUPROFEN
  4. MULTIVITAMIN [Concomitant]
     Active Substance: VITAMINS
  5. BENICAR [Concomitant]
     Active Substance: OLMESARTAN MEDOXOMIL
  6. CALCIUM [Concomitant]
     Active Substance: CALCIUM
  7. DICLOFENAC [Concomitant]
     Active Substance: DICLOFENAC
  8. FUROSEMIDE. [Concomitant]
     Active Substance: FUROSEMIDE
  9. HYDRALAZINE [Concomitant]
     Active Substance: HYDRALAZINE HYDROCHLORIDE
  10. LETROZOLE. [Concomitant]
     Active Substance: LETROZOLE
  11. IBRANCE [Suspect]
     Active Substance: PALBOCICLIB
     Indication: BREAST CANCER FEMALE
     Route: 048
     Dates: start: 20160208
  12. ZANTAC [Concomitant]
     Active Substance: RANITIDINE HYDROCHLORIDE
  13. ZETIA [Concomitant]
     Active Substance: EZETIMIBE
  14. ASPIRIN. [Concomitant]
     Active Substance: ASPIRIN
  15. RANITIDINE. [Concomitant]
     Active Substance: RANITIDINE
  16. XARELTO [Concomitant]
     Active Substance: RIVAROXABAN
  17. BETAPACE [Concomitant]
     Active Substance: SOTALOL HYDROCHLORIDE
  18. METRONIDAZOL [Concomitant]
     Active Substance: METRONIDAZOLE

REACTIONS (2)
  - Therapy interrupted [None]
  - Brain neoplasm malignant [None]

NARRATIVE: CASE EVENT DATE: 20200330
